FAERS Safety Report 7607029-0 (Version None)
Quarter: 2011Q3

REPORT INFORMATION
  Report Type: 
  Country: None (occurrence: None)
  Receive Date: 20110712
  Receipt Date: 20110712
  Transmission Date: 20111222
  Serious: Yes (Hospitalization)
  Sender: FDA-Public Use
  Company Number: None

PATIENT
  Age: 79 Year
  Sex: Male
  Weight: 119.35 kg

DRUGS (1)
  1. CLONAZEPAM [Suspect]
     Dosage: 0.5 MG OTHER PO
     Route: 048
     Dates: end: 20100514

REACTIONS (1)
  - DIZZINESS [None]
